FAERS Safety Report 25513358 (Version 1)
Quarter: 2025Q3

REPORT INFORMATION
  Report Type: Spontaneous
  Country: US (occurrence: US)
  Receive Date: 20250703
  Receipt Date: 20250703
  Transmission Date: 20251021
  Serious: No
  Sender: SANOFI AVENTIS
  Company Number: US-SA-2025SA184900

PATIENT
  Sex: Female

DRUGS (1)
  1. TEPLIZUMAB-MZWV [Suspect]
     Active Substance: TEPLIZUMAB-MZWV
     Indication: Diabetes prophylaxis
     Dosage: 1030 UG/M2, RECEIVED ON LABEL DOSING DAILY
     Route: 042
     Dates: end: 20250303

REACTIONS (1)
  - Epstein-Barr virus antibody positive [Not Recovered/Not Resolved]

NARRATIVE: CASE EVENT DATE: 20250410
